FAERS Safety Report 24606857 (Version 1)
Quarter: 2024Q4

REPORT INFORMATION
  Report Type: Spontaneous
  Country: GB (occurrence: GB)
  Receive Date: 20241112
  Receipt Date: 20241112
  Transmission Date: 20250115
  Serious: Yes (Other)
  Sender: ACCORD
  Company Number: None

PATIENT
  Sex: Female

DRUGS (2)
  1. AMLODIPINE [Suspect]
     Active Substance: AMLODIPINE BESYLATE
     Indication: Hypertension
     Dosage: 10MG
     Dates: start: 20230401, end: 20241028
  2. LOSARTAN [Concomitant]
     Active Substance: LOSARTAN
     Dates: end: 20240930

REACTIONS (7)
  - Brain fog [Recovering/Resolving]
  - Depressed mood [Recovering/Resolving]
  - Cognitive disorder [Recovering/Resolving]
  - Lack of spontaneous speech [Recovering/Resolving]
  - Mental impairment [Recovering/Resolving]
  - Bradyphrenia [Recovering/Resolving]
  - Disturbance in attention [Recovering/Resolving]
